FAERS Safety Report 5969547-0 (Version None)
Quarter: 2008Q4

REPORT INFORMATION
  Report Type: 
  Country: None (occurrence: None)
  Receive Date: 20081126
  Receipt Date: 20081114
  Transmission Date: 20090506
  Serious: Yes (Life-Threatening, Hospitalization, Other)
  Sender: FDA-Public Use
  Company Number: JP-PFIZER INC-2008072946

PATIENT
  Sex: Male
  Weight: 70 kg

DRUGS (9)
  1. SUTENT [Suspect]
     Indication: RENAL CANCER
     Route: 048
     Dates: start: 20080812, end: 20081008
  2. ONON [Concomitant]
  3. VALSARTAN [Concomitant]
  4. HOKUNALIN [Concomitant]
  5. AMLODIN [Concomitant]
  6. HERBAL PREPARATION [Concomitant]
  7. LASIX [Concomitant]
     Route: 048
     Dates: start: 20080820
  8. ALDACTONE [Concomitant]
  9. GASTER OD [Concomitant]

REACTIONS (9)
  - ANAEMIA [None]
  - ANOREXIA [None]
  - BLOOD UREA INCREASED [None]
  - C-REACTIVE PROTEIN INCREASED [None]
  - HYPERURICAEMIA [None]
  - HYPOALBUMINAEMIA [None]
  - OEDEMA PERIPHERAL [None]
  - PLATELET COUNT DECREASED [None]
  - THROMBOCYTOPENIA [None]
